FAERS Safety Report 5405391-0 (Version None)
Quarter: 2007Q3

REPORT INFORMATION
  Report Type: 
  Country: None (occurrence: None)
  Receive Date: 20070803
  Receipt Date: 20070727
  Transmission Date: 20080115
  Serious: Yes (Hospitalization, Other)
  Sender: FDA-Public Use
  Company Number: JP-ROXANE LABORATORIES, INC-2007-BP-18090NB

PATIENT
  Sex: Female
  Weight: 56 kg

DRUGS (11)
  1. MOBIC [Suspect]
     Indication: MUSCULOSKELETAL PAIN
     Route: 048
     Dates: start: 20070718, end: 20070726
  2. BEPRICOR [Suspect]
     Indication: ATRIAL FLUTTER
     Route: 048
     Dates: start: 20070718, end: 20070726
  3. RHEUMATREX [Suspect]
     Indication: MUSCULOSKELETAL PAIN
     Route: 048
     Dates: start: 20070714, end: 20070726
  4. CIPROFLOXACIN [Suspect]
     Indication: PLEURISY
     Route: 042
     Dates: start: 20070723, end: 20070725
  5. CIPROFLOXACIN [Suspect]
     Indication: CELLULITIS
  6. PREDNISOLONE [Concomitant]
     Indication: MUSCULOSKELETAL PAIN
     Route: 048
     Dates: start: 20070714, end: 20070726
  7. FERROMIA (SODIUM FERROUS CITRATE) [Concomitant]
     Indication: IRON DEFICIENCY ANAEMIA
     Route: 048
     Dates: start: 20070714
  8. UNASYN-S (SULBACTAM SODIUM_AMPICILLIN SODIUM) [Concomitant]
     Indication: PLEURISY
     Route: 042
     Dates: start: 20070714, end: 20070721
  9. UNASYN-S (SULBACTAM SODIUM_AMPICILLIN SODIUM) [Concomitant]
     Indication: CELLULITIS
  10. FIRSTCIN [Concomitant]
     Indication: PLEURISY
     Route: 042
     Dates: start: 20070721, end: 20070726
  11. FIRSTCIN [Concomitant]
     Indication: CELLULITIS

REACTIONS (2)
  - GRANULOCYTOPENIA [None]
  - RENAL IMPAIRMENT [None]
